FAERS Safety Report 8574522-6 (Version None)
Quarter: 2012Q3

REPORT INFORMATION
  Report Type: 
  Country: None (occurrence: None)
  Receive Date: 20120806
  Receipt Date: 20120727
  Transmission Date: 20120928
  Serious: Yes (Disabling, Other)
  Sender: FDA-Public Use
  Company Number: GR-ALLERGAN-1210379US

PATIENT
  Sex: Male

DRUGS (1)
  1. EXOCIN [Suspect]
     Indication: OTITIS EXTERNA
     Route: 001

REACTIONS (2)
  - DEAFNESS UNILATERAL [None]
  - DRUG ADMINISTERED AT INAPPROPRIATE SITE [None]
